FAERS Safety Report 9123142 (Version 1)
Quarter: 2013Q1

REPORT INFORMATION
  Report Type: Spontaneous
  Country: US (occurrence: None)
  Receive Date: 20130225
  Receipt Date: 20130225
  Transmission Date: 20140127
  Serious: Yes (Other)
  Sender: FDA-Public Use
  Company Number: None

PATIENT
  Age: 48 Year
  Sex: Female
  Weight: 72.58 kg

DRUGS (1)
  1. BUPROPION HCL SR 200 MG EON LABS [Suspect]
     Indication: DEPRESSION
     Dosage: 400 MG ONCE DAILY PO
     Route: 048
     Dates: start: 20070901, end: 20110315

REACTIONS (3)
  - Mental status changes [None]
  - Depression [None]
  - Product substitution issue [None]
